FAERS Safety Report 4675876-3 (Version None)
Quarter: 2005Q2

REPORT INFORMATION
  Report Type: 
  Country: None (occurrence: None)
  Receive Date: 20050525
  Receipt Date: 20050513
  Transmission Date: 20051028
  Serious: Yes (Hospitalization)
  Sender: FDA-Public Use
  Company Number: 2005074391

PATIENT
  Age: 94 Year
  Sex: Male

DRUGS (8)
  1. NITROGLYCERIN [Suspect]
     Indication: MYOCARDIAL ISCHAEMIA
     Dosage: 25 MG, TOPICAL
     Route: 061
     Dates: start: 20041120, end: 20041123
  2. ATENOLOL [Concomitant]
     Indication: MYOCARDIAL ISCHAEMIA
     Dosage: 120 MG, ORAL
     Route: 048
     Dates: end: 20041121
  3. ISOSORBIDE MONONITRATE [Suspect]
     Indication: MYOCARDIAL ISCHAEMIA
     Dosage: 120 MG, ORAL
     Route: 048
     Dates: end: 20041121
  4. ROXITHROMYCIN (ROXITHROMYCIN) [Suspect]
     Indication: ILL-DEFINED DISORDER
     Dosage: 300 MG, ORAL
     Route: 048
     Dates: start: 20041120, end: 20041130
  5. FUROSEMIDE [Suspect]
     Indication: LEFT VENTRICULAR FAILURE
     Dosage: 40 MG, INTRAVENOUS
     Route: 042
     Dates: start: 20041120, end: 20041123
  6. PRAZOSIN HCL [Suspect]
     Indication: ESSENTIAL HYPERTENSION
     Dosage: 6 MG, ORAL
     Route: 048
     Dates: end: 20041121
  7. NIFEDIPINE [Suspect]
     Indication: MYOCARDIAL ISCHAEMIA
     Dosage: 20 MG, ORAL
     Route: 048
     Dates: end: 20041121
  8. CEFTRIAXONE [Suspect]
     Indication: ILL-DEFINED DISORDER
     Dosage: 1 GRAM, INTRAVENOUS
     Route: 042
     Dates: start: 20041120, end: 20041121

REACTIONS (3)
  - CAMPYLOBACTER INTESTINAL INFECTION [None]
  - DIARRHOEA [None]
  - FAECES DISCOLOURED [None]
